FAERS Safety Report 4966974-5 (Version None)
Quarter: 2006Q2

REPORT INFORMATION
  Report Type: 
  Country: None (occurrence: None)
  Receive Date: 20060403
  Receipt Date: 20060324
  Transmission Date: 20061013
  Serious: Yes (Life-Threatening, Hospitalization, Other)
  Sender: FDA-Public Use
  Company Number: 2006041636

PATIENT
  Sex: Male
  Weight: 78.0187 kg

DRUGS (2)
  1. LIPITOR (ATORVASTATIN) [Suspect]
     Indication: CARDIAC DISORDER
     Dosage: 20 MG (20 MG, 1 IN 1 D), ORAL
     Route: 048
  2. NORVASC [Suspect]
     Indication: CARDIAC DISORDER
     Dosage: 5 MG (5MG, 1 IN 1 D), ORAL
     Route: 048

REACTIONS (7)
  - ARTERIAL RUPTURE [None]
  - CARDIAC DISORDER [None]
  - GRAFT COMPLICATION [None]
  - HAEMORRHAGE [None]
  - MOBILITY DECREASED [None]
  - PROCEDURAL COMPLICATION [None]
  - QUADRUPLE VESSEL BYPASS GRAFT [None]
